FAERS Safety Report 8929067 (Version 1)
Quarter: 2012Q4

REPORT INFORMATION
  Report Type: 
  Country: US (occurrence: US)
  Receive Date: 20121128
  Receipt Date: 20121128
  Transmission Date: 20130627
  Serious: No
  Sender: FDA-Public Use
  Company Number: US-BIOGENIDEC-2011BI038877

PATIENT
  Sex: Male

DRUGS (1)
  1. AVONEX [Suspect]
     Indication: MULTIPLE SCLEROSIS
     Route: 030
     Dates: start: 201103, end: 201105

REACTIONS (4)
  - Hepatic enzyme increased [Unknown]
  - Abdominal pain [Recovered/Resolved]
  - Liver disorder [Unknown]
  - Hypersensitivity [Unknown]
